FAERS Safety Report 25298344 (Version 1)
Quarter: 2025Q2

REPORT INFORMATION
  Report Type: Spontaneous
  Country: US (occurrence: US)
  Receive Date: 20250512
  Receipt Date: 20250512
  Transmission Date: 20250716
  Serious: No
  Sender: CSL BEHRING
  Company Number: US-BEH-2025204245

PATIENT
  Age: 58 Year
  Sex: Female
  Weight: 68.9 kg

DRUGS (18)
  1. ZEMAIRA [Suspect]
     Active Substance: .ALPHA.1-PROTEINASE INHIBITOR HUMAN
     Indication: Alpha-1 antitrypsin deficiency
     Dosage: 60 MG/KG QW
     Route: 042
  2. ZEMAIRA [Suspect]
     Active Substance: .ALPHA.1-PROTEINASE INHIBITOR HUMAN
     Dosage: UNK, QW
     Route: 042
  3. AIMOVIG [Concomitant]
     Active Substance: ERENUMAB-AOOE
  4. BOTOX [Concomitant]
     Active Substance: ONABOTULINUMTOXINA
  5. BUPROPION [Concomitant]
     Active Substance: BUPROPION
  6. CYCLOBENZAPRINE [Concomitant]
     Active Substance: CYCLOBENZAPRINE
  7. GABAPENTIN [Concomitant]
     Active Substance: GABAPENTIN
  8. HYDROXYZINE [Concomitant]
     Active Substance: HYDROXYZINE HYDROCHLORIDE
  9. LIDOCAINE [Concomitant]
     Active Substance: LIDOCAINE
  10. OMEPRAZOLE [Concomitant]
     Active Substance: OMEPRAZOLE
  11. POLYMYXIN B [Concomitant]
     Active Substance: POLYMYXIN B
  12. PRAZOSIN HYDROCHLORIDE [Concomitant]
     Active Substance: PRAZOSIN HYDROCHLORIDE
  13. PRIMIDONE [Concomitant]
     Active Substance: PRIMIDONE
  14. TIZANIDINE [Concomitant]
     Active Substance: TIZANIDINE
  15. HYDROCODONE [Concomitant]
     Active Substance: HYDROCODONE
  16. NAPROXEN [Concomitant]
     Active Substance: NAPROXEN
  17. TRAZODONE [Concomitant]
     Active Substance: TRAZODONE HYDROCHLORIDE
  18. BENADRYL [Concomitant]
     Active Substance: DIPHENHYDRAMINE HYDROCHLORIDE
     Indication: Premedication

REACTIONS (3)
  - Paraesthesia oral [Recovered/Resolved]
  - Laryngeal tremor [Recovered/Resolved]
  - Tremor [Recovered/Resolved]
